FAERS Safety Report 6828258-X (Version None)
Quarter: 2010Q3

REPORT INFORMATION
  Report Type: 
  Country: None (occurrence: None)
  Receive Date: 20100709
  Receipt Date: 20070205
  Transmission Date: 20110219
  Serious: Yes (Other)
  Sender: FDA-Public Use
  Company Number: US-PFIZER INC-2007003238

PATIENT
  Sex: Female
  Weight: 66.7 kg

DRUGS (17)
  1. CHANTIX [Suspect]
     Indication: SMOKING CESSATION THERAPY
     Dates: start: 20070102
  2. ATENOLOL [Concomitant]
  3. CARDIZEM CD [Concomitant]
  4. CAPOTEN [Concomitant]
  5. LANOXIN [Concomitant]
  6. IMDUR [Concomitant]
  7. SPIRONOLACTONE [Concomitant]
  8. LASIX [Concomitant]
  9. NIASPAN [Concomitant]
  10. VYTORIN [Concomitant]
  11. CELEXA [Concomitant]
  12. GABAPENTIN [Concomitant]
  13. KLONOPIN [Concomitant]
     Indication: SLEEP DISORDER
  14. SINEMET [Concomitant]
     Indication: RESTLESS LEGS SYNDROME
  15. GLUCOPHAGE [Concomitant]
  16. ACETYLSALICYLIC ACID [Concomitant]
  17. GLUCOTROL [Concomitant]

REACTIONS (1)
  - BLOOD GLUCOSE DECREASED [None]
